FAERS Safety Report 8244050-6 (Version None)
Quarter: 2012Q1

REPORT INFORMATION
  Report Type: 
  Country: None (occurrence: None)
  Receive Date: 20120329
  Receipt Date: 20120323
  Transmission Date: 20120608
  Serious: Yes (Other)
  Sender: FDA-Public Use
  Company Number: US-TEVA-329943USA

PATIENT
  Sex: Female

DRUGS (3)
  1. PROPOXYPHENE HCL [Suspect]
     Indication: PAIN MANAGEMENT
  2. PROPOXYPHENE NAPSYLATE W/ ACETAMINOPHEN [Suspect]
     Indication: PAIN MANAGEMENT
  3. PROPACET 100 [Suspect]
     Indication: PAIN MANAGEMENT

REACTIONS (3)
  - CARDIAC DISORDER [None]
  - ATRIAL FIBRILLATION [None]
  - HEART INJURY [None]
